FAERS Safety Report 21111743 (Version 1)
Quarter: 2022Q3

REPORT INFORMATION
  Report Type: Report from Study
  Country: CN (occurrence: CN)
  Receive Date: 20220721
  Receipt Date: 20220721
  Transmission Date: 20221026
  Serious: Yes (Hospitalization)
  Sender: FDA-Public Use
  Company Number: CN-NOVARTISPH-NVSC2019CN105936

PATIENT
  Age: 70 Year
  Sex: Male

DRUGS (7)
  1. PACLITAXEL [Suspect]
     Active Substance: PACLITAXEL
     Indication: Squamous cell carcinoma
     Dosage: 350 MG, Q3W
     Route: 042
     Dates: start: 20190424, end: 20190716
  2. PACLITAXEL [Suspect]
     Active Substance: PACLITAXEL
     Dosage: 224 MG, Q3W
     Route: 042
     Dates: start: 20190806
  3. RECOMBINANT HUMAN GRANULOCYTE COLONY STIMULAT [Concomitant]
     Indication: White blood cell count decreased
     Dosage: 200 MG, QD
     Route: 058
     Dates: start: 20190704, end: 20190710
  4. RECOMBINANT HUMAN GRANULOCYTE COLONY STIMULAT [Concomitant]
     Indication: Neutrophil count decreased
  5. OPRELVEKIN [Concomitant]
     Active Substance: OPRELVEKIN
     Indication: Platelet count decreased
     Dosage: 3 MG, QD
     Route: 058
     Dates: start: 20190704, end: 20190710
  6. METHYLCOBALAMIN [Concomitant]
     Active Substance: METHYLCOBALAMIN
     Indication: Supplementation therapy
     Dosage: 0.5 MG, TID
     Route: 048
     Dates: start: 20190626
  7. PREGABALIN [Concomitant]
     Active Substance: PREGABALIN
     Indication: Neuralgia
     Dosage: 075 MG, QD
     Route: 048
     Dates: start: 20190626

REACTIONS (1)
  - Pneumonia [Recovered/Resolved]

NARRATIVE: CASE EVENT DATE: 20190716
